FAERS Safety Report 9813239 (Version 1)
Quarter: 2014Q1

REPORT INFORMATION
  Report Type: Spontaneous
  Country: US (occurrence: None)
  Receive Date: 20140110
  Receipt Date: 20140110
  Transmission Date: 20141002
  Serious: Yes (Other)
  Sender: FDA-Public Use
  Company Number: None

PATIENT
  Age: 10 Year
  Sex: Male
  Weight: 36.29 kg

DRUGS (2)
  1. MUCINEX [Suspect]
     Indication: COUGH
     Dosage: TAKEN BY MOUTH
     Route: 048
     Dates: start: 20140108, end: 20140109
  2. MUCINEX [Suspect]
     Indication: PYREXIA
     Dosage: TAKEN BY MOUTH
     Route: 048
     Dates: start: 20140108, end: 20140109

REACTIONS (1)
  - Hallucination [None]
